FAERS Safety Report 4495457-4 (Version None)
Quarter: 2004Q4

REPORT INFORMATION
  Report Type: 
  Country: None (occurrence: None)
  Receive Date: 20041108
  Receipt Date: 20041102
  Transmission Date: 20050328
  Serious: Yes (Other)
  Sender: FDA-Public Use
  Company Number: 200418458US

PATIENT
  Sex: Male

DRUGS (9)
  1. LOVENOX [Suspect]
     Dates: start: 20040904
  2. COUMADIN [Concomitant]
     Indication: CEREBROVASCULAR ACCIDENT
     Route: 048
     Dates: end: 20040903
  3. CATAPRES [Concomitant]
     Route: 048
  4. ACYCLOVIR [Concomitant]
  5. LESCOL XL [Concomitant]
  6. MULTIVITAMIN [Concomitant]
     Dosage: DOSE: NOT PROVIDED
  7. FLOMAX BPH [Concomitant]
  8. ATENOLOL [Concomitant]
  9. NITROGLYCERIN [Concomitant]
     Indication: CHEST PAIN
     Route: 048

REACTIONS (14)
  - BLINDNESS UNILATERAL [None]
  - BLOOD CHLORIDE DECREASED [None]
  - BLOOD GLUCOSE INCREASED [None]
  - BLOOD PRESSURE DIASTOLIC DECREASED [None]
  - BRADYCARDIA [None]
  - CARDIOMEGALY [None]
  - CEREBRAL ATROPHY [None]
  - HAEMATOCRIT DECREASED [None]
  - HYPONATRAEMIA [None]
  - INTERNATIONAL NORMALISED RATIO DECREASED [None]
  - PCO2 DECREASED [None]
  - PROTHROMBIN TIME PROLONGED [None]
  - SUPRAVENTRICULAR EXTRASYSTOLES [None]
  - TRANSIENT ISCHAEMIC ATTACK [None]
